FAERS Safety Report 5319570-4 (Version None)
Quarter: 2007Q2

REPORT INFORMATION
  Report Type: 
  Country: None (occurrence: None)
  Receive Date: 20070508
  Receipt Date: 20070426
  Transmission Date: 20071010
  Serious: Yes (Other)
  Sender: FDA-Public Use
  Company Number: JP-PFIZER INC-2007034202

PATIENT
  Age: 25 Year
  Sex: Male

DRUGS (1)
  1. GABAPEN [Suspect]
     Route: 048

REACTIONS (3)
  - ALTERED STATE OF CONSCIOUSNESS [None]
  - CONVULSION [None]
  - MOVEMENT DISORDER [None]
